FAERS Safety Report 15453040 (Version 3)
Quarter: 2018Q4

REPORT INFORMATION
  Report Type: Spontaneous
  Country: US (occurrence: US)
  Receive Date: 20181001
  Receipt Date: 20181102
  Transmission Date: 20190204
  Serious: No
  Sender: FDA-Public Use
  Company Number: US-TASMAN PHARMA, INC.-2018TSM00114

PATIENT
  Weight: 97.51 kg

DRUGS (12)
  1. METFORMIN [Concomitant]
     Active Substance: METFORMIN HYDROCHLORIDE
     Dosage: 500 MG, 2X/DAY
  2. PEPCID [Concomitant]
     Active Substance: FAMOTIDINE
     Dosage: 20 MG, 2X/DAY
  3. PERPHENAZINE. [Concomitant]
     Active Substance: PERPHENAZINE
     Dosage: 4 MG, 2X/DAY
  4. LITHIUM. [Concomitant]
     Active Substance: LITHIUM
     Dosage: 300 MG, 1X/DAY
  5. LISINOPRIL. [Concomitant]
     Active Substance: LISINOPRIL
     Dosage: 20 MG, 1X/DAY
  6. BISACODYL. [Concomitant]
     Active Substance: BISACODYL
     Dosage: 10 MG, 1X/DAY
  7. CLOZARIL [Suspect]
     Active Substance: CLOZAPINE
     Dosage: 100 MG, 2X/DAY
     Dates: start: 201601
  8. CLOZARIL [Suspect]
     Active Substance: CLOZAPINE
     Dosage: 250 MG, 1X/DAY AT HS
     Dates: start: 201601
  9. CLOZARIL [Suspect]
     Active Substance: CLOZAPINE
  10. SYNTHROID [Concomitant]
     Active Substance: LEVOTHYROXINE SODIUM
     Dosage: 25 ?G, 1X/DAY
  11. HYDROXYZINE [Concomitant]
     Active Substance: HYDROXYZINE HYDROCHLORIDE
     Dosage: 50 MG, AS NEEDED
  12. AMLODIPINE [Concomitant]
     Active Substance: AMLODIPINE BESYLATE
     Dosage: 10 MG, 1X/DAY

REACTIONS (4)
  - Psychotic symptom [Unknown]
  - Hallucination [None]
  - Delusion [None]
  - Antipsychotic drug level [Unknown]

NARRATIVE: CASE EVENT DATE: 201808
